FAERS Safety Report 11865255 (Version 1)
Quarter: 2015Q4

REPORT INFORMATION
  Report Type: Spontaneous
  Country: FR (occurrence: FR)
  Receive Date: 20151223
  Receipt Date: 20151223
  Transmission Date: 20160305
  Serious: Yes (Hospitalization, Other)
  Sender: FDA-Public Use
  Company Number: FR-BAXTER-2015BAX067844

PATIENT
  Age: 7 Year
  Sex: Male
  Weight: 24 kg

DRUGS (15)
  1. ETOPOSIDE TEVA [Suspect]
     Active Substance: ETOPOSIDE
     Indication: RHABDOMYOSARCOMA
     Dosage: MMT 95 PROTOCOL, ON DAY1, DAY2, DAY3, 1ST COURSE
     Route: 065
     Dates: start: 20110530
  2. ETOPOSIDE TEVA [Suspect]
     Active Substance: ETOPOSIDE
     Dosage: SECOND COURSE OF IVE
     Route: 042
     Dates: start: 20110712, end: 20110714
  3. VINCRISTINE SULFATE. [Suspect]
     Active Substance: VINCRISTINE SULFATE
     Indication: RHABDOMYOSARCOMA
     Dosage: 9 COURSES
     Route: 065
     Dates: start: 200905
  4. HOLOXAN 2000 MG, POUDRE POUR USAGE PARENT?RAL [Suspect]
     Active Substance: IFOSFAMIDE
     Dosage: MMT 95 PROTOCOL, ON DAY1, DAY2 AND DAY3, 1ST COURSE OF IVE
     Route: 065
     Dates: start: 20110530
  5. VINCRISTINE SULFATE HOSPIRA [Suspect]
     Active Substance: VINCRISTINE SULFATE
     Dosage: DAY 1 OF CVE COURSE
     Route: 065
     Dates: start: 20110620
  6. CARBOPLATIN. [Suspect]
     Active Substance: CARBOPLATIN
     Dosage: SECOND COURSE OF CVE
     Route: 065
     Dates: start: 201108
  7. HOLOXAN 2000 MG, POUDRE POUR USAGE PARENT?RAL [Suspect]
     Active Substance: IFOSFAMIDE
     Dosage: SECOND COURSE OF IVE
     Route: 042
     Dates: start: 20110712, end: 20110714
  8. ADRIAMYCIN [Suspect]
     Active Substance: DOXORUBICIN HYDROCHLORIDE
     Indication: RHABDOMYOSARCOMA
     Dosage: ON DAY 1 AND DAY 2 OF CVE COURSE
     Route: 065
     Dates: start: 20110620
  9. ADRIAMYCIN [Suspect]
     Active Substance: DOXORUBICIN HYDROCHLORIDE
     Dosage: SECOND COURSE OF CVE
     Route: 065
     Dates: start: 201108
  10. VINCRISTINE SULFATE HOSPIRA [Suspect]
     Active Substance: VINCRISTINE SULFATE
     Dosage: SECOND COURSE OF IVE
     Route: 042
     Dates: start: 20110712, end: 20110712
  11. VINCRISTINE SULFATE HOSPIRA [Suspect]
     Active Substance: VINCRISTINE SULFATE
     Dosage: DAY 1 OF SECOND COURSE OF CVE
     Route: 065
     Dates: start: 201108
  12. CARBOPLATIN. [Suspect]
     Active Substance: CARBOPLATIN
     Indication: RHABDOMYOSARCOMA
     Dosage: ON DAY 1 OF CVE COURSE
     Route: 065
     Dates: start: 20110620
  13. UROMITEXAN 5 G/50 ML, SOLUTION INJECTABLE POUR PERFUSION EN FLACON [Suspect]
     Active Substance: MESNA
     Indication: PROPHYLAXIS
     Route: 042
     Dates: start: 20110712, end: 20110714
  14. VINCRISTINE SULFATE. [Suspect]
     Active Substance: VINCRISTINE SULFATE
     Dosage: MMT 95 PROTOCOL, ON DAY 1, 1ST COURSE
     Route: 065
     Dates: start: 20110530
  15. HOLOXAN 2000 MG, POUDRE POUR USAGE PARENT?RAL [Suspect]
     Active Substance: IFOSFAMIDE
     Indication: RHABDOMYOSARCOMA
     Dosage: 9 COURSES PER RMS PROTOCOL 2005, TOTAL DOSE: 39.8 GM
     Route: 065
     Dates: start: 200905

REACTIONS (7)
  - Abdominal pain [Unknown]
  - Bone marrow failure [Unknown]
  - Rhabdomyosarcoma recurrent [Unknown]
  - Pericarditis [Unknown]
  - Metastases to diaphragm [Unknown]
  - Lipase increased [Unknown]
  - Fanconi syndrome acquired [Recovered/Resolved]

NARRATIVE: CASE EVENT DATE: 201104
